FAERS Safety Report 10381970 (Version 1)
Quarter: 2014Q3

REPORT INFORMATION
  Report Type: Spontaneous
  Country: DK (occurrence: DK)
  Receive Date: 20140813
  Receipt Date: 20140813
  Transmission Date: 20150326
  Serious: Yes (Hospitalization)
  Sender: FDA-Public Use
  Company Number: DK-WATSON-2014-17359

PATIENT
  Age: 54 Year
  Sex: Male

DRUGS (7)
  1. LOSARTANKALIUM/HYDROCHLORTHIAZID ^TEVA^ [Concomitant]
     Indication: HYPERTENSION
     Dosage: UNK
     Route: 065
  2. BETOLVEX                           /00056202/ [Concomitant]
     Indication: PRODUCT USED FOR UNKNOWN INDICATION
     Dosage: UNK
     Route: 065
  3. MALFIN [Concomitant]
     Indication: PAIN
     Dosage: UNK
     Route: 065
  4. QUESTRAN [Suspect]
     Active Substance: CHOLESTYRAMINE
     Indication: BILE ACID MALABSORPTION
     Dosage: 4 G, MAX 4 TIMES DAILY
     Route: 048
     Dates: start: 20120315, end: 20140522
  5. HJERTEMAGNYL                       /00228701/ [Concomitant]
     Active Substance: ASPIRIN\MAGNESIUM OXIDE
     Indication: PRODUCT USED FOR UNKNOWN INDICATION
     Dosage: UNK
     Route: 065
  6. AMLODIPIN ACTAVIS                  /00972402/ [Concomitant]
     Indication: HYPERTENSION
     Dosage: UNK
     Route: 065
  7. SIMVASTATIN ACTAVIS [Suspect]
     Active Substance: SIMVASTATIN
     Indication: HYPERCHOLESTEROLAEMIA
     Dosage: 40 MG, DAILY
     Route: 048
     Dates: start: 201210, end: 20140324

REACTIONS (2)
  - Abdominal pain [Not Recovered/Not Resolved]
  - Pancreatitis acute [Not Recovered/Not Resolved]

NARRATIVE: CASE EVENT DATE: 20121212
